FAERS Safety Report 8485848-9 (Version None)
Quarter: 2012Q3

REPORT INFORMATION
  Report Type: 
  Country: None (occurrence: None)
  Receive Date: 20120703
  Receipt Date: 20120627
  Transmission Date: 20120928
  Serious: Yes (Other)
  Sender: FDA-Public Use
  Company Number: PHHY2012TW055601

PATIENT
  Sex: Female

DRUGS (3)
  1. METHADONE HCL [Suspect]
     Route: 064
  2. HEROIN [Suspect]
     Route: 064
  3. METHAMPHETAMINE HYDROCHLORIDE [Suspect]
     Route: 064

REACTIONS (11)
  - IRRITABILITY [None]
  - POOR SUCKING REFLEX [None]
  - CEREBRAL DISORDER [None]
  - HYPERTONIA [None]
  - FEEDING DISORDER NEONATAL [None]
  - CRYING [None]
  - DRUG WITHDRAWAL SYNDROME NEONATAL [None]
  - TREMOR [None]
  - DEVELOPMENTAL DELAY [None]
  - TACHYPNOEA [None]
  - FOETAL EXPOSURE DURING PREGNANCY [None]
